FAERS Safety Report 4367842-2 (Version None)
Quarter: 2004Q2

REPORT INFORMATION
  Report Type: 
  Country: None (occurrence: None)
  Receive Date: 20040601
  Receipt Date: 20040601
  Transmission Date: 20050107
  Serious: Yes (Hospitalization)
  Sender: FDA-Public Use
  Company Number: None

PATIENT
  Sex: Female
  Weight: 82.1011 kg

DRUGS (10)
  1. PIOGLITAZONE HCL [Suspect]
     Indication: GLUCOSE TOLERANCE IMPAIRED
     Dosage: 45 MG /DAY
  2. PIOGLITAZONE HCL [Suspect]
     Indication: HYPOTHYROIDISM
     Dosage: 45 MG /DAY
  3. PLACEBO [Suspect]
  4. PREMARIN [Concomitant]
  5. SYNTHROID [Concomitant]
  6. EFFEXOR [Concomitant]
  7. ACPHEX [Concomitant]
  8. SYNAX SR [Concomitant]
  9. TRAZODONE HCL [Concomitant]
  10. ATIVAN` [Concomitant]

REACTIONS (2)
  - CHOLELITHIASIS [None]
  - GALLBLADDER OEDEMA [None]
